FAERS Safety Report 12485795 (Version 1)
Quarter: 2016Q2

REPORT INFORMATION
  Report Type: Report from Study
  Country: CA (occurrence: CA)
  Receive Date: 20160621
  Receipt Date: 20160621
  Transmission Date: 20160815
  Serious: Yes (Other)
  Sender: FDA-Public Use
  Company Number: CA-UCBSA-2016022884

PATIENT
  Age: 31 Year
  Sex: Female

DRUGS (1)
  1. CERTOLIZUMAB PEGOL RA [Suspect]
     Active Substance: CERTOLIZUMAB PEGOL
     Indication: RHEUMATOID ARTHRITIS
     Dosage: 400 MG, EV 2 WEEKS(QOW) X 3
     Route: 058
     Dates: start: 20111219, end: 20111219

REACTIONS (4)
  - Irritable bowel syndrome [Unknown]
  - Nasopharyngitis [Recovering/Resolving]
  - Cystitis interstitial [Unknown]
  - Injection site pain [Unknown]

NARRATIVE: CASE EVENT DATE: 20111219
